FAERS Safety Report 6027806-X (Version None)
Quarter: 2009Q1

REPORT INFORMATION
  Report Type: 
  Country: None (occurrence: None)
  Receive Date: 20090105
  Receipt Date: 20081215
  Transmission Date: 20090719
  Serious: No
  Sender: FDA-Public Use
  Company Number: US-B.I. PHARMACEUTICALS,INC./RIDGEFIELD-2008-BP-18680BP

PATIENT
  Sex: Female

DRUGS (1)
  1. ZANTAC 75 [Suspect]

REACTIONS (3)
  - DRY MOUTH [None]
  - DYSPHAGIA [None]
  - TOOTH DEPOSIT [None]
